FAERS Safety Report 11639172 (Version 5)
Quarter: 2024Q1

REPORT INFORMATION
  Report Type: Spontaneous
  Country: FR (occurrence: FR)
  Receive Date: 20151019
  Receipt Date: 20240109
  Transmission Date: 20240410
  Serious: Yes (Hospitalization, Other)
  Sender: FDA-Public Use
  Company Number: FR-AUROBINDO-AUR-APL-2015-09329

PATIENT
  Age: 55 Year
  Sex: Male

DRUGS (7)
  1. CLOZAPINE [Interacting]
     Active Substance: CLOZAPINE
     Indication: Product used for unknown indication
     Dosage: UNK,6.25-18.75 MG/DAY
     Route: 065
  2. CLOZAPINE [Interacting]
     Active Substance: CLOZAPINE
     Dosage: 12.5 MILLIGRAM, DAILY
     Route: 065
  3. PRAMIPEXOLE [Suspect]
     Active Substance: PRAMIPEXOLE\PRAMIPEXOLE DIHYDROCHLORIDE
     Indication: Parkinson^s disease
     Dosage: 1.31 MG, DAILY
     Route: 065
  4. RASAGILINE [Suspect]
     Active Substance: RASAGILINE
     Indication: Parkinson^s disease
     Dosage: UNK
     Route: 065
  5. ROPINIROLE [Suspect]
     Active Substance: ROPINIROLE
     Indication: Parkinson^s disease
     Dosage: UNK
     Route: 065
  6. STALEVO [Suspect]
     Active Substance: CARBIDOPA\ENTACAPONE\LEVODOPA
     Indication: Parkinson^s disease
     Dosage: 225 MG, DAILY
     Route: 065
  7. ROTIGOTINE [Suspect]
     Active Substance: ROTIGOTINE
     Indication: Parkinson^s disease
     Dosage: 6 MG, DAILY
     Route: 065

REACTIONS (11)
  - Impulse-control disorder [Recovered/Resolved]
  - Suicidal ideation [Recovered/Resolved]
  - Hypersexuality [Recovered/Resolved]
  - Depression [Recovered/Resolved]
  - Sedation [Recovered/Resolved]
  - Stereotypy [Recovered/Resolved]
  - Compulsive shopping [Recovered/Resolved]
  - Insomnia [Recovered/Resolved]
  - Weight decreased [Recovered/Resolved]
  - Depressive symptom [Recovered/Resolved]
  - Drug interaction [Unknown]
